FAERS Safety Report 12257646 (Version 1)
Quarter: 2016Q2

REPORT INFORMATION
  Report Type: Spontaneous
  Country: DE (occurrence: DE)
  Receive Date: 20160412
  Receipt Date: 20160412
  Transmission Date: 20160815
  Serious: Yes (Hospitalization, Other)
  Sender: FDA-Public Use
  Company Number: DE-BRISTOL-MYERS SQUIBB COMPANY-BMS-2016-025848

PATIENT
  Age: 64 Year
  Sex: Male

DRUGS (1)
  1. IPILIMUMAB [Suspect]
     Active Substance: IPILIMUMAB
     Indication: PROSTATE CANCER
     Dosage: 10 MG/KG, UNK
     Route: 065
     Dates: start: 201108

REACTIONS (8)
  - Autoimmune thyroiditis [Unknown]
  - Abdominal pain upper [Unknown]
  - Pruritus [Unknown]
  - Encephalopathy [Unknown]
  - Hypophysitis [Unknown]
  - Diarrhoea [Unknown]
  - Dehydration [Unknown]
  - Prerenal failure [Unknown]
